FAERS Safety Report 14233388 (Version 5)
Quarter: 2018Q1

REPORT INFORMATION
  Report Type: Other
  Country: FI (occurrence: FI)
  Receive Date: 20171128
  Receipt Date: 20180322
  Transmission Date: 20180508
  Serious: Yes (Disabling, Other)
  Sender: FDA-Public Use
  Company Number: FI-LUNDBECK-DKLU2040576

PATIENT
  Age: 38 Year
  Sex: Male

DRUGS (4)
  1. LEVETIRACETAM. [Suspect]
     Active Substance: LEVETIRACETAM
     Indication: FRONTAL LOBE EPILEPSY
     Route: 065
  2. OXCARBAZEPINE. [Suspect]
     Active Substance: OXCARBAZEPINE
     Indication: FRONTAL LOBE EPILEPSY
     Route: 065
  3. CLOBAZAM [Concomitant]
     Active Substance: CLOBAZAM
     Indication: PRODUCT USED FOR UNKNOWN INDICATION
     Route: 065
  4. CLOBAZAM [Suspect]
     Active Substance: CLOBAZAM
     Indication: FRONTAL LOBE EPILEPSY
     Route: 065

REACTIONS (1)
  - Sleep apnoea syndrome [Unknown]
